FAERS Safety Report 26145026 (Version 1)
Quarter: 2025Q4

REPORT INFORMATION
  Report Type: Spontaneous
  Country: US (occurrence: US)
  Receive Date: 20251211
  Receipt Date: 20251211
  Transmission Date: 20260117
  Serious: No
  Sender: DAIICHI
  Company Number: US-DAIICHI SANKYO, INC.-DS-2025-181024-USAA

PATIENT
  Sex: Male

DRUGS (1)
  1. DATOPOTAMAB DERUXTECAN [Suspect]
     Active Substance: DATOPOTAMAB DERUXTECAN
     Indication: Lung neoplasm malignant
     Route: 041

REACTIONS (2)
  - Dry eye [Recovering/Resolving]
  - Stomatitis [Recovering/Resolving]
